FAERS Safety Report 11939815 (Version 1)
Quarter: 2016Q1

REPORT INFORMATION
  Report Type: Report from Study
  Country: US (occurrence: US)
  Receive Date: 20160122
  Receipt Date: 20160122
  Transmission Date: 20160526
  Serious: Yes (Hospitalization, Other)
  Sender: FDA-Public Use
  Company Number: US-KADMON PHARMACEUTICALS, LLC-KAD201601-000219

PATIENT
  Age: 50 Year
  Sex: Female
  Weight: 88.45 kg

DRUGS (19)
  1. RIBAVIRIN. [Suspect]
     Active Substance: RIBAVIRIN
     Indication: HEPATITIS C
     Dosage: TABLET
     Route: 048
     Dates: start: 20150813
  2. ALBUTEROL. [Concomitant]
     Active Substance: ALBUTEROL
  3. KETOCONAZOLE. [Concomitant]
     Active Substance: KETOCONAZOLE
  4. VIEKIRA PAK [Suspect]
     Active Substance: DASABUVIR\OMBITASVIR\PARITAPREVIR\RITONAVIR
     Indication: HEPATITIS C
     Dosage: TABLET
     Route: 048
     Dates: start: 20150813
  5. SODIUM CHLORIDE. [Concomitant]
     Active Substance: SODIUM CHLORIDE
  6. INSULIN ASPART [Concomitant]
     Active Substance: INSULIN ASPART
  7. SUMATRIPTAN. [Concomitant]
     Active Substance: SUMATRIPTAN
  8. VIEKIRA PAK [Suspect]
     Active Substance: DASABUVIR\OMBITASVIR\PARITAPREVIR\RITONAVIR
     Dosage: TABLET
     Route: 048
     Dates: start: 20150813
  9. FLUTICASONE [Concomitant]
     Active Substance: FLUTICASONE\FLUTICASONE PROPIONATE
  10. INSULIN GLARGINE [Concomitant]
     Active Substance: INSULIN GLARGINE
  11. RIFAXIMIN [Concomitant]
     Active Substance: RIFAXIMIN
  12. LACTOBACILLUS RHAMNOSUS [Concomitant]
     Active Substance: LACTOBACILLUS RHAMNOSUS
  13. LOSARTAN. [Concomitant]
     Active Substance: LOSARTAN
  14. OXYCODONE [Concomitant]
     Active Substance: OXYCODONE
  15. PHENAZOPYRIDINE. [Concomitant]
     Active Substance: PHENAZOPYRIDINE
  16. PROPRANOLOL [Concomitant]
     Active Substance: PROPRANOLOL\PROPRANOLOL HYDROCHLORIDE
  17. GABAPENTIN. [Concomitant]
     Active Substance: GABAPENTIN
  18. MONTELUKAST [Concomitant]
     Active Substance: MONTELUKAST SODIUM
  19. PANTOPRAZOLE [Concomitant]
     Active Substance: PANTOPRAZOLE SODIUM

REACTIONS (3)
  - Somnolence [Unknown]
  - Condition aggravated [Unknown]
  - Vertigo positional [Unknown]

NARRATIVE: CASE EVENT DATE: 20150929
